FAERS Safety Report 15167798 (Version 1)
Quarter: 2018Q3

REPORT INFORMATION
  Report Type: Spontaneous
  Country: US (occurrence: US)
  Receive Date: 20180719
  Receipt Date: 20180719
  Transmission Date: 20181010
  Serious: No
  Sender: FDA-Public Use
  Company Number: US-GALDERMA-US18003171

PATIENT
  Sex: Female

DRUGS (3)
  1. TRI?LUMA [Suspect]
     Active Substance: FLUOCINOLONE ACETONIDE\HYDROQUINONE\TRETINOIN
     Indication: PRECANCEROUS SKIN LESION
     Route: 061
  2. DIFFERIN [Suspect]
     Active Substance: ADAPALENE
     Indication: PRECANCEROUS SKIN LESION
     Route: 061
  3. EPIDUO [Suspect]
     Active Substance: ADAPALENE\BENZOYL PEROXIDE
     Indication: PRECANCEROUS SKIN LESION
     Dosage: 0.1%/2.5%
     Route: 061

REACTIONS (2)
  - Dry skin [Unknown]
  - Intentional product use issue [Recovered/Resolved]
